FAERS Safety Report 5183377-1 (Version None)
Quarter: 2006Q4

REPORT INFORMATION
  Report Type: 
  Country: None (occurrence: None)
  Receive Date: 20061220
  Receipt Date: 20060110
  Transmission Date: 20070319
  Serious: No
  Sender: FDA-Public Use
  Company Number: US-GLAXOSMITHKLINE-A0588537A

PATIENT
  Age: 25 Year
  Sex: Female
  Weight: 63.6 kg

DRUGS (2)
  1. NICODERM CQ [Suspect]
     Dates: start: 20060109, end: 20060109
  2. NICODERM CQ [Suspect]

REACTIONS (7)
  - APPLICATION SITE ERYTHEMA [None]
  - DIZZINESS [None]
  - FEELING HOT [None]
  - HEART RATE INCREASED [None]
  - NAUSEA [None]
  - OEDEMA PERIPHERAL [None]
  - VOMITING [None]
